FAERS Safety Report 23212857 (Version 5)
Quarter: 2024Q1

REPORT INFORMATION
  Report Type: Spontaneous
  Country: US (occurrence: US)
  Receive Date: 20231121
  Receipt Date: 20240126
  Transmission Date: 20240410
  Serious: No
  Sender: FDA-Public Use
  Company Number: US-PFIZER INC-202300366584

PATIENT
  Age: 14 Year
  Sex: Male
  Weight: 51.26 kg

DRUGS (1)
  1. GENOTROPIN [Suspect]
     Active Substance: SOMATROPIN
     Indication: Growth hormone deficiency
     Dosage: 2.2 MG
     Dates: start: 202301

REACTIONS (2)
  - Liquid product physical issue [Unknown]
  - Needle issue [Unknown]

NARRATIVE: CASE EVENT DATE: 20231110
